FAERS Safety Report 24077821 (Version 1)
Quarter: 2024Q3

REPORT INFORMATION
  Report Type: Spontaneous
  Country: US (occurrence: US)
  Receive Date: 20240711
  Receipt Date: 20240711
  Transmission Date: 20241017
  Serious: Yes (Hospitalization, Other)
  Sender: AUROBINDO
  Company Number: US-AUROBINDO-AUR-APL-2024-033614

PATIENT
  Age: 83 Year
  Sex: Male

DRUGS (1)
  1. MEROPENEM [Suspect]
     Active Substance: MEROPENEM
     Indication: Klebsiella bacteraemia
     Dosage: UNK
     Route: 065

REACTIONS (3)
  - Fungaemia [Recovering/Resolving]
  - Septic shock [Recovering/Resolving]
  - Candida infection [Recovering/Resolving]
